FAERS Safety Report 13536584 (Version 3)
Quarter: 2018Q2

REPORT INFORMATION
  Report Type: Report from Study
  Country: US (occurrence: US)
  Receive Date: 20170511
  Receipt Date: 20180615
  Transmission Date: 20180711
  Serious: Yes (Other)
  Sender: FDA-Public Use
  Company Number: US-ROCHE-1930768

PATIENT

DRUGS (4)
  1. TRASTUZUMAB. [Suspect]
     Active Substance: TRASTUZUMAB
     Indication: HER-2 POSITIVE BREAST CANCER
     Dosage: LOADING DOSE
     Route: 042
  2. IRBINITINIB [Suspect]
     Active Substance: IRBINITINIB
     Indication: HER-2 POSITIVE BREAST CANCER
     Route: 048
  3. TRASTUZUMAB. [Suspect]
     Active Substance: TRASTUZUMAB
     Route: 042
  4. CAPECITABINE. [Suspect]
     Active Substance: CAPECITABINE
     Indication: HER-2 POSITIVE BREAST CANCER
     Route: 048

REACTIONS (35)
  - Lymphoedema [Unknown]
  - Pleural effusion [Unknown]
  - Influenza [Unknown]
  - Tumour pain [Unknown]
  - Visual field defect [Unknown]
  - Seizure [Unknown]
  - Pneumonia [Unknown]
  - Brain oedema [Unknown]
  - Cardiac arrest [Unknown]
  - Diarrhoea [Unknown]
  - Alanine aminotransferase increased [Unknown]
  - Hypophosphataemia [Unknown]
  - Weight increased [Unknown]
  - Mental status changes [Unknown]
  - Peritonitis bacterial [Unknown]
  - Spinal pain [Unknown]
  - Anaemia [Unknown]
  - Mucosal inflammation [Unknown]
  - Asthenia [Unknown]
  - Hyponatraemia [Unknown]
  - Breast pain [Unknown]
  - Ascites [Unknown]
  - Pericardial effusion [Unknown]
  - Aspartate aminotransferase increased [Unknown]
  - Oedema peripheral [Unknown]
  - Neutropenia [Unknown]
  - Migraine [Unknown]
  - Soft tissue infection [Unknown]
  - Palmar-plantar erythrodysaesthesia syndrome [Unknown]
  - Fatigue [Unknown]
  - Hypokalaemia [Unknown]
  - Cellulitis [Unknown]
  - Leukopenia [Unknown]
  - Nausea [Unknown]
  - Dysarthria [Unknown]
